FAERS Safety Report 17262995 (Version 1)
Quarter: 2020Q1

REPORT INFORMATION
  Report Type: Spontaneous
  Country: US (occurrence: US)
  Receive Date: 20200110
  Receipt Date: 20200110
  Transmission Date: 20200409
  Serious: Yes (Disabling)
  Sender: FDA-Public Use
  Company Number: None

PATIENT
  Age: 67 Year
  Sex: Female
  Weight: 65.25 kg

DRUGS (6)
  1. TYMLOS [Suspect]
     Active Substance: ABALOPARATIDE
     Indication: OSTEOPOROSIS POSTMENOPAUSAL
     Dosage: ?          QUANTITY:1 INJECTION(S);?
     Route: 058
     Dates: start: 20191012, end: 20191228
  2. HYDROCHLOROTHIAZIDE. [Concomitant]
     Active Substance: HYDROCHLOROTHIAZIDE
  3. VITAMIN D [Concomitant]
     Active Substance: VITAMIN D NOS
  4. CENTRUM [Concomitant]
     Active Substance: VITAMINS
  5. ATROVASTATIN [Concomitant]
     Active Substance: ATORVASTATIN CALCIUM
  6. XARELTO [Concomitant]
     Active Substance: RIVAROXABAN

REACTIONS (14)
  - Abdominal pain upper [None]
  - Decreased appetite [None]
  - Weight decreased [None]
  - Fatigue [None]
  - Nausea [None]
  - Headache [None]
  - Feeling abnormal [None]
  - Pain in extremity [None]
  - Vertigo [None]
  - Palpitations [None]
  - Balance disorder [None]
  - Flank pain [None]
  - Dizziness [None]
  - Nocturia [None]

NARRATIVE: CASE EVENT DATE: 20191128
